FAERS Safety Report 8462123-X (Version None)
Quarter: 2012Q2

REPORT INFORMATION
  Report Type: 
  Country: None (occurrence: None)
  Receive Date: 20120625
  Receipt Date: 20120612
  Transmission Date: 20120825
  Serious: Yes (Other)
  Sender: FDA-Public Use
  Company Number: US-SANOFI-AVENTIS-2012SA042250

PATIENT
  Sex: Male

DRUGS (3)
  1. MULTAQ [Suspect]
     Route: 048
     Dates: start: 20100101
  2. SIMVASTATIN [Suspect]
     Route: 065
     Dates: start: 20120601
  3. PRAVASTATIN [Suspect]
     Route: 065
     Dates: start: 20120101

REACTIONS (3)
  - MYALGIA [None]
  - MALAISE [None]
  - STENT PLACEMENT [None]
